FAERS Safety Report 15995755 (Version 1)
Quarter: 2019Q1

REPORT INFORMATION
  Report Type: Spontaneous
  Country: US (occurrence: US)
  Receive Date: 20190222
  Receipt Date: 20190222
  Transmission Date: 20190418
  Serious: No
  Sender: FDA-Public Use
  Company Number: US-PERRIGO-18US004950

PATIENT
  Age: 90 Year
  Sex: Male
  Weight: 56.69 kg

DRUGS (7)
  1. LOPERAMIDE HYDROCHLORIDE. [Suspect]
     Active Substance: LOPERAMIDE HYDROCHLORIDE
     Indication: DIARRHOEA
     Dosage: 2 TO 4 MG, 1 TO 3 TIMES DAILY
     Route: 048
     Dates: start: 201803, end: 201803
  2. GLUCOSAMINE [Concomitant]
     Active Substance: GLUCOSAMINE
     Indication: PRODUCT USED FOR UNKNOWN INDICATION
     Dosage: 1 TABLET, UNKNOWN
     Route: 048
     Dates: start: 1993
  3. PROBIOTIC                          /06395501/ [Concomitant]
     Active Substance: BIFIDOBACTERIUM ANIMALIS LACTIS
     Indication: FLATULENCE
     Dosage: 1 TABLET, UNKNOWN
     Route: 048
     Dates: start: 2015
  4. CALCIUM [Concomitant]
     Active Substance: CALCIUM
     Indication: BACK DISORDER
     Dosage: 1 TABLET, UNKNOWN
     Route: 048
     Dates: start: 2013
  5. LIPID MODIFYING AGENTS [Concomitant]
     Active Substance: UNSPECIFIED INGREDIENT
     Indication: BLOOD CHOLESTEROL INCREASED
     Dosage: 1 TABLET, UNKNOWN
     Route: 048
     Dates: start: 2013
  6. LOPERAMIDE HYDROCHLORIDE. [Suspect]
     Active Substance: LOPERAMIDE HYDROCHLORIDE
     Dosage: 2 TO 4 MG, 1 TO 3 TIMES DAILY
     Route: 048
     Dates: start: 2018
  7. VITAMIN D [Concomitant]
     Active Substance: CHOLECALCIFEROL
     Indication: BACK DISORDER
     Dosage: 1 TABLET, UNKNOWN
     Route: 048
     Dates: start: 2013

REACTIONS (3)
  - Incorrect product administration duration [Recovered/Resolved]
  - Drug ineffective [Unknown]
  - Intentional product use issue [Unknown]

NARRATIVE: CASE EVENT DATE: 201803
